FAERS Safety Report 23145742 (Version 2)
Quarter: 2023Q4

REPORT INFORMATION
  Report Type: Report from Study
  Country: ZA (occurrence: ZA)
  Receive Date: 20231103
  Receipt Date: 20231114
  Transmission Date: 20240110
  Serious: Yes (Death, Other)
  Sender: FDA-Public Use
  Company Number: ZA-GILEAD-2023-0649751

PATIENT

DRUGS (15)
  1. CABOTEGRAVIR [Suspect]
     Active Substance: CABOTEGRAVIR
     Indication: Prophylaxis against HIV infection
     Dosage: 30 MG, QD
     Route: 064
     Dates: start: 20191104, end: 20191202
  2. EMTRICITABINE\TENOFOVIR DISOPROXIL FUMARATE [Suspect]
     Active Substance: EMTRICITABINE\TENOFOVIR DISOPROXIL FUMARATE
     Indication: Prophylaxis against HIV infection
     Dosage: 30 MG, QD
     Route: 064
     Dates: start: 20191104, end: 20191202
  3. PLACEBO [Suspect]
     Active Substance: UNSPECIFIED INGREDIENT
     Indication: Prophylaxis against HIV infection
     Dosage: 30 MG, QD
     Route: 064
     Dates: start: 20191104, end: 20191202
  4. CABOTEGRAVIR [Suspect]
     Active Substance: CABOTEGRAVIR
     Dosage: 600 MG; 2 DOSES 4 WEEKS APART AND EVERY 8 WEEKS THEREAFTER.
     Route: 064
     Dates: start: 20191209, end: 20201207
  5. EMTRICITABINE\TENOFOVIR DISOPROXIL FUMARATE [Suspect]
     Active Substance: EMTRICITABINE\TENOFOVIR DISOPROXIL FUMARATE
     Dosage: 600 MG; 2 DOSES 4 WEEKS APART AND EVERY 8 WEEKS THEREAFTER.
     Route: 064
     Dates: start: 20191209, end: 20201207
  6. PLACEBO [Suspect]
     Active Substance: UNSPECIFIED INGREDIENT
     Dosage: 600 MG; 2 DOSES 4 WEEKS APART AND EVERY 8 WEEKS THEREAFTER.
     Route: 064
     Dates: start: 20191209, end: 20201207
  7. CABOTEGRAVIR [Suspect]
     Active Substance: CABOTEGRAVIR
     Dosage: 600 MG; 2 DOSES 4 WEEKS APART AND EVERY 8 WEEKS THEREAFTER
     Route: 064
     Dates: start: 20210201, end: 20230307
  8. EMTRICITABINE\TENOFOVIR DISOPROXIL FUMARATE [Suspect]
     Active Substance: EMTRICITABINE\TENOFOVIR DISOPROXIL FUMARATE
     Dosage: 600 MG; 2 DOSES 4 WEEKS APART AND EVERY 8 WEEKS THEREAFTER
     Route: 064
     Dates: start: 20210201, end: 20230307
  9. PLACEBO [Suspect]
     Active Substance: UNSPECIFIED INGREDIENT
     Dosage: 600 MG; 2 DOSES 4 WEEKS APART AND EVERY 8 WEEKS THEREAFTER
     Route: 064
     Dates: start: 20210201, end: 20230307
  10. CABOTEGRAVIR [Suspect]
     Active Substance: CABOTEGRAVIR
     Dosage: 1 DOSAGE FORM, QD
     Route: 064
     Dates: start: 20191104, end: 20191208
  11. EMTRICITABINE\TENOFOVIR DISOPROXIL FUMARATE [Suspect]
     Active Substance: EMTRICITABINE\TENOFOVIR DISOPROXIL FUMARATE
     Dosage: 1 DOSAGE FORM, QD
     Route: 064
     Dates: start: 20191104, end: 20191208
  12. PLACEBO [Suspect]
     Active Substance: UNSPECIFIED INGREDIENT
     Dosage: 1 DOSAGE FORM, QD
     Route: 064
     Dates: start: 20191104, end: 20191208
  13. HYDROCHLOROTHIAZIDE [Concomitant]
     Active Substance: HYDROCHLOROTHIAZIDE
  14. ENALAPRIL [Concomitant]
     Active Substance: ENALAPRIL
  15. AMLODIPINE [Concomitant]
     Active Substance: AMLODIPINE BESYLATE

REACTIONS (2)
  - Death neonatal [Fatal]
  - Foetal exposure during pregnancy [Recovered/Resolved]

NARRATIVE: CASE EVENT DATE: 20230719
